FAERS Safety Report 17894403 (Version 2)
Quarter: 2020Q3

REPORT INFORMATION
  Report Type: Report from Study
  Country: IT (occurrence: IT)
  Receive Date: 20200615
  Receipt Date: 20200713
  Transmission Date: 20201103
  Serious: Yes (Death)
  Sender: FDA-Public Use
  Company Number: NVSC2020IT165408

PATIENT
  Sex: Female

DRUGS (2)
  1. ILARIS [Suspect]
     Active Substance: CANAKINUMAB
     Indication: COVID-19 PNEUMONIA
     Dosage: 300 MG
     Route: 065
     Dates: start: 20200410, end: 20200413
  2. ILARIS [Suspect]
     Active Substance: CANAKINUMAB
     Indication: CORONAVIRUS INFECTION

REACTIONS (1)
  - Death [Fatal]
